FAERS Safety Report 4744826-3 (Version None)
Quarter: 2005Q3

REPORT INFORMATION
  Report Type: 
  Country: None (occurrence: None)
  Receive Date: 20050815
  Receipt Date: 20050808
  Transmission Date: 20060218
  Serious: Yes (Other)
  Sender: FDA-Public Use
  Company Number: 2005-07-0898

PATIENT
  Age: 48 Year
  Sex: Female
  Weight: 46.4 kg

DRUGS (3)
  1. WELLBUTRIN [Suspect]
     Indication: DEPRESSION
     Route: 048
     Dates: start: 20050501
  2. PEGYLATED INTERFERON ALPHA 2B [Suspect]
     Indication: HEPATITIS C
     Route: 065
     Dates: start: 20050104
  3. REBETOL [Suspect]
     Indication: HEPATITIS C
     Route: 048
     Dates: start: 20050104

REACTIONS (5)
  - DEPRESSION [None]
  - PERSONALITY CHANGE [None]
  - RESTLESS LEGS SYNDROME [None]
  - SCHIZOPHRENIA [None]
  - SUICIDAL IDEATION [None]
